FAERS Safety Report 15944269 (Version 1)
Quarter: 2019Q1

REPORT INFORMATION
  Report Type: Spontaneous
  Country: CA (occurrence: CA)
  Receive Date: 20190211
  Receipt Date: 20190211
  Transmission Date: 20190417
  Serious: Yes (Hospitalization, Other)
  Sender: FDA-Public Use
  Company Number: CA-BRISTOL-MYERS SQUIBB COMPANY-BMS-2019-010918

PATIENT
  Age: 65 Year
  Sex: Male
  Weight: 57 kg

DRUGS (6)
  1. CORTEF [Concomitant]
     Active Substance: HYDROCORTISONE
     Indication: PRODUCT USED FOR UNKNOWN INDICATION
     Route: 065
  2. YERVOY [Suspect]
     Active Substance: IPILIMUMAB
     Indication: LUNG ADENOCARCINOMA
     Dosage: 55.2 MG, Q2WK
     Route: 042
  3. OPDIVO [Suspect]
     Active Substance: NIVOLUMAB
     Indication: LUNG ADENOCARCINOMA
     Dosage: 240 MG, Q6WK
     Route: 042
  4. ASA [Concomitant]
     Active Substance: ASPIRIN
     Indication: PRODUCT USED FOR UNKNOWN INDICATION
     Route: 065
  5. SYNTHROID [Concomitant]
     Active Substance: LEVOTHYROXINE SODIUM
     Indication: PRODUCT USED FOR UNKNOWN INDICATION
     Route: 065
  6. BISOPROLOL [Concomitant]
     Active Substance: BISOPROLOL
     Indication: PRODUCT USED FOR UNKNOWN INDICATION
     Route: 065

REACTIONS (6)
  - Pallor [Recovering/Resolving]
  - Burning sensation [Recovering/Resolving]
  - Product use in unapproved indication [Unknown]
  - Skin discolouration [Recovering/Resolving]
  - Hypoaesthesia [Recovering/Resolving]
  - Off label use [Unknown]
